FAERS Safety Report 24105369 (Version 1)
Quarter: 2024Q3

REPORT INFORMATION
  Report Type: Spontaneous
  Country: GB (occurrence: GB)
  Receive Date: 20240717
  Receipt Date: 20240717
  Transmission Date: 20241017
  Serious: No
  Sender: PFIZER
  Company Number: GB-PFIZER INC-PV202400090476

PATIENT
  Age: 9 Year
  Sex: Male

DRUGS (1)
  1. NGENLA [Suspect]
     Active Substance: SOMATROGON-GHLA
     Indication: Small for dates baby
     Dosage: 15 MG, WEEKLY (OW)
     Route: 058

REACTIONS (2)
  - Drug dose omission by device [Unknown]
  - Needle issue [Unknown]
